FAERS Safety Report 6945487-5 (Version None)
Quarter: 2010Q3

REPORT INFORMATION
  Report Type: 
  Country: None (occurrence: None)
  Receive Date: 20100827
  Receipt Date: 20100816
  Transmission Date: 20110219
  Serious: No
  Sender: FDA-Public Use
  Company Number: US-PFIZER INC-2010103124

PATIENT
  Sex: Female

DRUGS (2)
  1. DIFLUCAN [Suspect]
     Dosage: UNK
  2. MACROBID [Suspect]
     Dosage: UNK

REACTIONS (1)
  - SWELLING FACE [None]
